FAERS Safety Report 5442037-X (Version None)
Quarter: 2007Q3

REPORT INFORMATION
  Report Type: 
  Country: None (occurrence: None)
  Receive Date: 20070904
  Receipt Date: 20070827
  Transmission Date: 20080115
  Serious: Yes (Other)
  Sender: FDA-Public Use
  Company Number: BR-ASTRAZENECA-2007UW20544

PATIENT
  Age: 4 Year
  Sex: Male

DRUGS (1)
  1. LOSEC I.V. [Suspect]
     Indication: GASTROOESOPHAGEAL REFLUX DISEASE
     Route: 048
     Dates: start: 20070824

REACTIONS (1)
  - HAEMATOCHEZIA [None]
